FAERS Safety Report 16378442 (Version 1)
Quarter: 2019Q2

REPORT INFORMATION
  Report Type: Spontaneous
  Country: US (occurrence: US)
  Receive Date: 20190410
  Receipt Date: 20190410
  Transmission Date: 20190711
  Serious: Yes (Hospitalization)
  Sender: FDA-Public Use
  Company Number: None

PATIENT
  Age: 61 Year
  Sex: Male
  Weight: 82.3 kg

DRUGS (1)
  1. HERCEPTIN [Suspect]
     Active Substance: TRASTUZUMAB
     Indication: BREAST CANCER
     Dosage: ?          OTHER FREQUENCY:ONCE (LOADING DOSE;?
     Route: 042

REACTIONS (4)
  - Chills [None]
  - Infusion related reaction [None]
  - Rash [None]
  - Erythema [None]

NARRATIVE: CASE EVENT DATE: 20190403
